FAERS Safety Report 16173150 (Version 1)
Quarter: 2019Q2

REPORT INFORMATION
  Report Type: Spontaneous
  Country: US (occurrence: US)
  Receive Date: 20190305
  Receipt Date: 20190305
  Transmission Date: 20190711
  Serious: No
  Sender: FDA-Public Use
  Company Number: None

PATIENT
  Age: 35 Year
  Sex: Male

DRUGS (1)
  1. OCREVUS [Suspect]
     Active Substance: OCRELIZUMAB
     Indication: MULTIPLE SCLEROSIS
     Dosage: ?          OTHER FREQUENCY:EVERY14DAYS ;?
     Route: 042
     Dates: start: 20190226

REACTIONS (3)
  - Infusion site extravasation [None]
  - Infusion site swelling [None]
  - Infusion site erythema [None]

NARRATIVE: CASE EVENT DATE: 20190206
